FAERS Safety Report 17851825 (Version 1)
Quarter: 2020Q2

REPORT INFORMATION
  Report Type: Spontaneous
  Country: US (occurrence: US)
  Receive Date: 20200602
  Receipt Date: 20200602
  Transmission Date: 20200714
  Serious: No
  Sender: FDA-Public Use
  Company Number: US-PFIZER INC-2020213468

PATIENT
  Sex: Female

DRUGS (2)
  1. PANTOPRAZOLE [Suspect]
     Active Substance: PANTOPRAZOLE
     Dosage: 40 MG, 2X/DAY[40MG IN THE MORNING AND IN THE EVENING ]
  2. PANTOPRAZOLE [Suspect]
     Active Substance: PANTOPRAZOLE
     Dosage: 20 MG, 2X/DAY (ONCE IN MORNING AND EVENING)

REACTIONS (9)
  - Eating disorder [Unknown]
  - Depression [Unknown]
  - Cardiac monitoring [Unknown]
  - Constipation [Unknown]
  - Anxiety [Unknown]
  - Irritable bowel syndrome [Unknown]
  - Osteoarthritis [Unknown]
  - Abdominal pain upper [Unknown]
  - Chest pain [Unknown]
